FAERS Safety Report 6882682-8 (Version None)
Quarter: 2010Q3

REPORT INFORMATION
  Report Type: 
  Country: None (occurrence: None)
  Receive Date: 20100702
  Receipt Date: 20090629
  Transmission Date: 20110219
  Serious: No
  Sender: FDA-Public Use
  Company Number: 2009-00245

PATIENT
  Sex: Female
  Weight: 58.9676 kg

DRUGS (2)
  1. ZICAM EXTREME CONGESTION RELIEF [Suspect]
     Dosage: BID X 8 DAYS
     Dates: start: 20090609, end: 20090617
  2. SYNTHROID [Concomitant]

REACTIONS (1)
  - ANOSMIA [None]
